FAERS Safety Report 9971543 (Version 4)
Quarter: 2014Q3

REPORT INFORMATION
  Report Type: Spontaneous
  Country: US (occurrence: US)
  Receive Date: 20140306
  Receipt Date: 20140725
  Transmission Date: 20150326
  Serious: Yes (Death, Hospitalization, Disabling, Other)
  Sender: FDA-Public Use
  Company Number: US-MERCK-1403USA002028

PATIENT
  Sex: Male
  Weight: 101.13 kg

DRUGS (2)
  1. JANUVIA [Suspect]
     Active Substance: SITAGLIPTIN PHOSPHATE
     Indication: TYPE 2 DIABETES MELLITUS
     Dosage: 50 MG, QD
     Route: 048
     Dates: start: 20071008, end: 20120520
  2. CENTRUM (MINERALS (UNSPECIFIED) (+) VITAMINS (UNSPECIFIED)) [Concomitant]
     Dosage: UNK
     Dates: start: 2004, end: 2011

REACTIONS (24)
  - Erythema [Unknown]
  - Nasopharyngitis [Unknown]
  - Metastases to liver [Unknown]
  - Pancreatitis [Unknown]
  - Urinary tract obstruction [Unknown]
  - Diverticulum intestinal [Unknown]
  - Gallbladder disorder [Unknown]
  - Ear haemorrhage [Unknown]
  - Incision site haemorrhage [Unknown]
  - Stress [Unknown]
  - Arthralgia [Unknown]
  - Benign prostatic hyperplasia [Unknown]
  - Chronic obstructive pulmonary disease [Unknown]
  - Pancreatic carcinoma metastatic [Fatal]
  - Intervertebral disc degeneration [Unknown]
  - Osteoarthritis [Unknown]
  - Back pain [Not Recovered/Not Resolved]
  - Blood pressure inadequately controlled [Unknown]
  - Portal vein thrombosis [Unknown]
  - Renal cyst [Unknown]
  - Depression [Unknown]
  - Bile duct stent insertion [Unknown]
  - Gastrooesophageal reflux disease [Unknown]
  - Photodermatosis [Unknown]

NARRATIVE: CASE EVENT DATE: 2008
